FAERS Safety Report 15426111 (Version 2)
Quarter: 2019Q1

REPORT INFORMATION
  Report Type: Spontaneous
  Country: US (occurrence: US)
  Receive Date: 20180925
  Receipt Date: 20190320
  Transmission Date: 20190417
  Serious: Yes (Hospitalization, Other)
  Sender: FDA-Public Use
  Company Number: US-SA-2018SA263919

PATIENT
  Age: 56 Year
  Sex: Male

DRUGS (14)
  1. LISINOPRIL. [Concomitant]
     Active Substance: LISINOPRIL
  2. BACLOFEN. [Concomitant]
     Active Substance: BACLOFEN
  3. METOPROLOL. [Concomitant]
     Active Substance: METOPROLOL
  4. PRALUENT [Suspect]
     Active Substance: ALIROCUMAB
     Indication: CARDIAC DISORDER
     Dosage: 75 MG, QOW
     Route: 058
  5. LIPITOR [Concomitant]
     Active Substance: ATORVASTATIN CALCIUM
  6. TAMSULOSIN [Concomitant]
     Active Substance: TAMSULOSIN
  7. BUPROPION. [Concomitant]
     Active Substance: BUPROPION
  8. NOVOLOG [Concomitant]
     Active Substance: INSULIN ASPART
  9. LAMOTRIGINE. [Concomitant]
     Active Substance: LAMOTRIGINE
  10. LASIX [Concomitant]
     Active Substance: FUROSEMIDE
  11. ASPIRIN [ACETYLSALICYLIC ACID] [Concomitant]
     Active Substance: ASPIRIN
  12. RANEXA [Concomitant]
     Active Substance: RANOLAZINE
  13. LANTUS [Concomitant]
     Active Substance: INSULIN GLARGINE
  14. GABAPENTIN. [Concomitant]
     Active Substance: GABAPENTIN

REACTIONS (7)
  - Nausea [Unknown]
  - Impaired gastric emptying [Unknown]
  - Skin cancer [Unknown]
  - Faeces discoloured [Unknown]
  - Diarrhoea [Unknown]
  - Skin infection [Unknown]
  - Product dose omission [Unknown]

NARRATIVE: CASE EVENT DATE: 20180905
